FAERS Safety Report 7398950-X (Version None)
Quarter: 2011Q2

REPORT INFORMATION
  Report Type: 
  Country: None (occurrence: None)
  Receive Date: 20110407
  Receipt Date: 20110405
  Transmission Date: 20111010
  Serious: No
  Sender: FDA-Public Use
  Company Number: US-PFIZER INC-2010099092

PATIENT
  Sex: Female
  Weight: 72.6 kg

DRUGS (6)
  1. PREMARIN [Suspect]
     Indication: VULVOVAGINAL DRYNESS
     Dosage: 1-2 G, 3X/ WEEK
     Dates: start: 20100730, end: 20100802
  2. PREMARIN [Suspect]
     Indication: PAIN
  3. ATENOLOL [Concomitant]
     Dosage: 100 MG, DAILY
  4. PREMARIN [Suspect]
     Indication: CYSTOCELE
  5. PREMARIN [Suspect]
  6. DIFLUCAN [Suspect]
     Indication: VULVOVAGINAL MYCOTIC INFECTION
     Dosage: UNK
     Dates: start: 20100731

REACTIONS (3)
  - VULVOVAGINAL BURNING SENSATION [None]
  - VULVOVAGINAL MYCOTIC INFECTION [None]
  - DRUG ADMINISTRATION ERROR [None]
